FAERS Safety Report 14874164 (Version 1)
Quarter: 2018Q2

REPORT INFORMATION
  Report Type: Spontaneous
  Country: US (occurrence: US)
  Receive Date: 20180424
  Receipt Date: 20180424
  Transmission Date: 20180711
  Serious: Yes (Hospitalization)
  Sender: FDA-Public Use
  Company Number: None

PATIENT
  Age: 70 Year
  Sex: Male
  Weight: 89.81 kg

DRUGS (2)
  1. LEUPROLIDE ACETATE. [Suspect]
     Active Substance: LEUPROLIDE ACETATE
     Dates: end: 20180227
  2. CASODEX [Suspect]
     Active Substance: BICALUTAMIDE
     Dates: end: 20180405

REACTIONS (21)
  - Cerebral infarction [None]
  - Cerebral artery occlusion [None]
  - Vertebral artery stenosis [None]
  - Speech disorder [None]
  - Dysarthria [None]
  - International normalised ratio increased [None]
  - Left ventricular hypertrophy [None]
  - Hemiparesis [None]
  - Facial paralysis [None]
  - Atrial fibrillation [None]
  - Asthenia [None]
  - Aphasia [None]
  - Dysphagia [None]
  - Mental status changes [None]
  - Escherichia urinary tract infection [None]
  - Prothrombin time prolonged [None]
  - Carotid artery stenosis [None]
  - Intracranial mass [None]
  - Mitral valve incompetence [None]
  - Cognitive disorder [None]
  - Cerebral ischaemia [None]

NARRATIVE: CASE EVENT DATE: 20180406
